FAERS Safety Report 11641439 (Version 1)
Quarter: 2015Q4

REPORT INFORMATION
  Report Type: Report from Study
  Country: US (occurrence: CA)
  Receive Date: 20151019
  Receipt Date: 20151019
  Transmission Date: 20160304
  Serious: Yes (Hospitalization, Other)
  Sender: FDA-Public Use
  Company Number: US-JNJFOC-20151009967

PATIENT
  Sex: Male

DRUGS (2)
  1. REMICADE [Suspect]
     Active Substance: INFLIXIMAB
     Indication: ARTHRITIS
     Route: 042
  2. REMICADE [Suspect]
     Active Substance: INFLIXIMAB
     Indication: COLITIS ULCERATIVE
     Route: 042

REACTIONS (7)
  - Malaise [Recovering/Resolving]
  - Off label use [Unknown]
  - Arthritis [Recovering/Resolving]
  - Neoplasm recurrence [Unknown]
  - Pain [Recovering/Resolving]
  - Lymphoma [Unknown]
  - Product use issue [Unknown]

NARRATIVE: CASE EVENT DATE: 2015
